FAERS Safety Report 23295974 (Version 1)
Quarter: 2023Q4

REPORT INFORMATION
  Report Type: Spontaneous
  Country: US (occurrence: US)
  Receive Date: 20231214
  Receipt Date: 20231214
  Transmission Date: 20240110
  Serious: No
  Sender: FDA-Public Use
  Company Number: US-TAIHOP-2023-010367

PATIENT
  Sex: Male

DRUGS (2)
  1. LONSURF [Suspect]
     Active Substance: TIPIRACIL HYDROCHLORIDE\TRIFLURIDINE
     Indication: Colon cancer
     Dosage: FORM STRENGTH 15 MG AND 20 MG?CYCLE UNKNOWN
     Route: 048
     Dates: start: 202308
  2. LONSURF [Suspect]
     Active Substance: TIPIRACIL HYDROCHLORIDE\TRIFLURIDINE
     Dosage: FORM STRENGTH UNKNOWN?CYCLE UNKNOWN
     Route: 048

REACTIONS (1)
  - Inappropriate schedule of product administration [Unknown]
